FAERS Safety Report 14925551 (Version 2)
Quarter: 2018Q3

REPORT INFORMATION
  Report Type: Spontaneous
  Country: US (occurrence: US)
  Receive Date: 20180522
  Receipt Date: 20180702
  Transmission Date: 20181010
  Serious: Yes (Other)
  Sender: FDA-Public Use
  Company Number: US-GEHC-2018CSU001926

PATIENT
  Age: 43 Year
  Sex: Female
  Weight: 100.2 kg

DRUGS (1)
  1. OMNIPAQUE [Suspect]
     Active Substance: IOHEXOL
     Indication: HAEMATURIA
     Dosage: 100 ML, SINGLE
     Route: 042
     Dates: start: 20180515, end: 20180515

REACTIONS (3)
  - Urticaria [Recovered/Resolved]
  - Swelling face [Recovered/Resolved]
  - Ear swelling [Recovered/Resolved]

NARRATIVE: CASE EVENT DATE: 20180515
